FAERS Safety Report 6546874-X (Version None)
Quarter: 2010Q1

REPORT INFORMATION
  Report Type: 
  Country: None (occurrence: None)
  Receive Date: 20100119
  Receipt Date: 20100104
  Transmission Date: 20100710
  Serious: Yes (Hospitalization, Other)
  Sender: FDA-Public Use
  Company Number: 2010S1000103

PATIENT
  Age: 58 Year
  Sex: Female
  Weight: 71.36 kg

DRUGS (13)
  1. PHOSPHOSODA FLAVOR NOT SPECIFIED [Suspect]
     Indication: COLONOSCOPY
     Dosage: PO
     Route: 048
     Dates: start: 20071119, end: 20071119
  2. MAXZIDE [Concomitant]
  3. CENTRUM SILVER /01292501/ [Concomitant]
  4. PREMARIN [Concomitant]
  5. CALCIUM [Concomitant]
  6. HYZAAR [Concomitant]
  7. PROZAC [Concomitant]
  8. NEXIUM [Concomitant]
  9. FERROUS SULFATE TAB [Concomitant]
  10. FISH OIL [Concomitant]
  11. VITAMIN B-12 [Concomitant]
  12. VITAMIN B6 [Concomitant]
  13. VITAMIN A [Concomitant]

REACTIONS (3)
  - ABDOMINAL PAIN [None]
  - ATELECTASIS [None]
  - RENAL FAILURE CHRONIC [None]
